FAERS Safety Report 15591044 (Version 4)
Quarter: 2018Q4

REPORT INFORMATION
  Report Type: Spontaneous
  Country: US (occurrence: US)
  Receive Date: 20181107
  Receipt Date: 20181114
  Transmission Date: 20190205
  Serious: Yes (Other)
  Sender: FDA-Public Use
  Company Number: US-TEVA-2018-US-971073

PATIENT
  Age: 73 Year
  Sex: Female

DRUGS (5)
  1. CLONAZTAB [Suspect]
     Active Substance: CLONAZEPAM
     Indication: SEIZURE
     Dosage: DISINTEGRATING TABLET
     Route: 048
     Dates: start: 1989
  2. CLONAZEPAM ROCHE [Suspect]
     Active Substance: CLONAZEPAM
     Dates: start: 201804
  3. CLONAZTAB [Suspect]
     Active Substance: CLONAZEPAM
     Dates: start: 201804
  4. CLONAZEPAM ACCORD [Suspect]
     Active Substance: CLONAZEPAM
     Dates: start: 201803
  5. KLONOPIN [Suspect]
     Active Substance: CLONAZEPAM
     Dosage: FOR SEVERAL WEEKS
     Route: 065

REACTIONS (5)
  - Product substitution issue [Unknown]
  - Nervousness [Unknown]
  - Loss of consciousness [Unknown]
  - Nausea [Unknown]
  - Gastritis erosive [Unknown]

NARRATIVE: CASE EVENT DATE: 201803
